FAERS Safety Report 8017337 (Version 6)
Quarter: 2012Q4

REPORT INFORMATION
  Report Type: Report from Study
  Country: JP (occurrence: JP)
  Receive Date: 20110630
  Receipt Date: 20121102
  Transmission Date: 20130627
  Serious: Yes (Death, Hospitalization, Other)
  Sender: FDA-Public Use
  Company Number: JP-GENZYME-THYM-1002555

PATIENT
  Age: 23 Year
  Sex: Male
  Weight: 53 kg

DRUGS (60)
  1. THYMOGLOBULIN [Suspect]
     Indication: BONE MARROW CONDITIONING REGIMEN
     Dosage: 66 mg, qd
     Route: 042
     Dates: start: 20100210, end: 20100211
  2. FLUDARA [Suspect]
     Indication: BONE MARROW CONDITIONING REGIMEN
     Dosage: 50 mg, qd
     Route: 065
     Dates: start: 20100204, end: 20100208
  3. IFOSFAMIDE [Concomitant]
     Indication: EWING^S SARCOMA RECURRENT
     Dosage: UNK
     Route: 065
     Dates: start: 20090803, end: 20090805
  4. IFOSFAMIDE [Concomitant]
     Dosage: UNK
     Route: 065
     Dates: start: 20090826, end: 20090828
  5. IFOSFAMIDE [Concomitant]
     Dosage: UNK
     Route: 065
     Dates: start: 20090924, end: 20090926
  6. IFOSFAMIDE [Concomitant]
     Dosage: UNK
     Route: 065
  7. ETOPOSIDE [Concomitant]
     Indication: EWING^S SARCOMA RECURRENT
     Dosage: UNK
     Route: 065
     Dates: start: 20090803, end: 20090805
  8. ETOPOSIDE [Concomitant]
     Dosage: UNK
     Route: 065
     Dates: start: 20090824, end: 20090926
  9. PIRARUBICIN HYDROCHLORIDE [Concomitant]
     Indication: EWING^S SARCOMA RECURRENT
     Dosage: UNK
     Route: 065
     Dates: start: 20090804, end: 20090804
  10. PIRARUBICIN HYDROCHLORIDE [Concomitant]
     Dosage: UNK
     Route: 065
     Dates: start: 20090827, end: 20090827
  11. PIRARUBICIN HYDROCHLORIDE [Concomitant]
     Dosage: UNK
     Route: 065
     Dates: start: 20090925, end: 20090925
  12. CARBOPLATIN [Concomitant]
     Indication: EWING^S SARCOMA RECURRENT
     Dosage: UNK
     Route: 065
     Dates: start: 20090805, end: 20090805
  13. CARBOPLATIN [Concomitant]
     Dosage: UNK
     Route: 065
     Dates: start: 20090828, end: 20090828
  14. CARBOPLATIN [Concomitant]
     Dosage: UNK
     Route: 065
     Dates: start: 20090926, end: 20090926
  15. VINCRISTINE SULFATE [Concomitant]
     Indication: EWING^S SARCOMA RECURRENT
     Dosage: UNK
     Route: 065
     Dates: start: 20091026, end: 20091028
  16. VINCRISTINE SULFATE [Concomitant]
     Dosage: UNK
     Route: 065
     Dates: start: 20091120, end: 20091121
  17. CYCLOPHOSPHAMIDE MONOHYDRATE [Concomitant]
     Indication: EWING^S SARCOMA RECURRENT
     Dosage: UNK
     Route: 065
     Dates: start: 20091026, end: 20091027
  18. CYCLOPHOSPHAMIDE MONOHYDRATE [Concomitant]
     Dosage: UNK
     Route: 065
     Dates: start: 20091120, end: 20091121
  19. GLYCYRRHIZIN GLYCINE CYTEINE COMBINED [Concomitant]
     Indication: PROPHYLAXIS
     Dosage: UNK
     Route: 065
     Dates: start: 20100204, end: 20100401
  20. GLUTATHIONE [Concomitant]
     Indication: PROPHYLAXIS
     Dosage: UNK
     Route: 065
     Dates: start: 20100204, end: 20100401
  21. FAMOTIDINE [Concomitant]
     Indication: HAEMORRHAGE PROPHYLAXIS
     Dosage: UNK
     Route: 065
     Dates: start: 20100204, end: 20100303
  22. GRANISETRON HYDROCHLORIDE [Concomitant]
     Indication: PROPHYLAXIS OF NAUSEA AND VOMITING
     Dosage: UNK
     Route: 065
     Dates: start: 20100204, end: 20100314
  23. HYDROCORTISONE SODIUM SUCCINATE [Concomitant]
     Indication: PROPHYLAXIS OF NAUSEA AND VOMITING
     Dosage: UNK
     Route: 065
     Dates: start: 20100204, end: 20100212
  24. HYDROCORTISONE SODIUM SUCCINATE [Concomitant]
     Indication: PREMEDICATION
  25. DALTEPARIN SODIUM [Concomitant]
     Indication: PROPHYLAXIS
     Dosage: UNK
     Route: 065
     Dates: start: 20100204, end: 20100330
  26. MICAFUNGIN SODIUM [Concomitant]
     Indication: INFECTION PROPHYLAXIS
     Dosage: UNK
     Route: 065
     Dates: start: 20100204, end: 20100331
  27. MICAFUNGIN SODIUM [Concomitant]
     Dosage: UNK
     Route: 065
     Dates: start: 20100808
  28. PIPERACILLIN SODIUM [Concomitant]
     Indication: INFECTION PROPHYLAXIS
     Dosage: UNK
     Route: 065
     Dates: start: 20100204, end: 20100216
  29. MELPHALAN [Concomitant]
     Indication: BONE MARROW CONDITIONING REGIMEN
     Dosage: UNK
     Route: 065
     Dates: start: 20100209, end: 20100210
  30. METHYLPREDNISOLONE SODIUM SUCCINATE [Concomitant]
     Indication: PREMEDICATION
     Dosage: UNK
     Route: 065
     Dates: start: 20100210, end: 20100211
  31. HYDROXYZINE HYDROCHLORIDE [Concomitant]
     Indication: PREMEDICATION
     Dosage: UNK
     Route: 065
     Dates: start: 20100210, end: 20100806
  32. TACROLIMUS [Concomitant]
     Indication: PROPHYLAXIS AGAINST GRAFT VERSUS HOST DISEASE
     Dosage: UNK
     Route: 065
     Dates: start: 20100211, end: 20100225
  33. TACROLIMUS [Concomitant]
     Dosage: UNK
     Route: 065
     Dates: start: 20100226, end: 20100623
  34. PREDNISOLONE ACETATE [Concomitant]
     Indication: PROPHYLAXIS AGAINST GRAFT VERSUS HOST DISEASE
     Dosage: UNK
     Route: 065
     Dates: start: 20100212, end: 20100326
  35. FILGRASTIM [Concomitant]
     Indication: WHITE BLOOD CELL COUNT
     Dosage: UNK
     Route: 065
     Dates: start: 20100213, end: 20100226
  36. IMIPEM [Concomitant]
     Indication: INFECTION PROPHYLAXIS
     Dosage: UNK
     Route: 065
     Dates: start: 20100217, end: 20100222
  37. METHOTREXATE [Concomitant]
     Indication: PROPHYLAXIS AGAINST GRAFT VERSUS HOST DISEASE
     Dosage: UNK
     Route: 065
     Dates: start: 20100214, end: 20100214
  38. METHOTREXATE [Concomitant]
     Dosage: UNK
     Route: 065
     Dates: start: 20100218, end: 20100218
  39. CEFTRIAXONE [Concomitant]
     Indication: INFECTION PROPHYLAXIS
     Dosage: UNK
     Route: 065
     Dates: start: 20100228, end: 20100301
  40. CEFTRIAXONE [Concomitant]
     Dosage: UNK
     Route: 065
     Dates: start: 20100806, end: 20100807
  41. VANCOMYCIN HYDROCHLORIDE [Concomitant]
     Indication: INFECTION PROPHYLAXIS
     Dosage: UNK
     Route: 065
     Dates: start: 20100204, end: 20100305
  42. POLYMYXIN B SULFATE [Concomitant]
     Indication: INFECTION PROPHYLAXIS
     Dosage: UNK
     Route: 065
     Dates: start: 20100204, end: 20100305
  43. ZOVIRAX [Concomitant]
     Indication: INFECTION PROPHYLAXIS
     Dosage: UNK
     Route: 065
     Dates: start: 20100205, end: 20100321
  44. FLUCONAL [Concomitant]
     Indication: INFECTION PROPHYLAXIS
     Dosage: UNK
     Route: 065
     Dates: start: 20100205, end: 20100402
  45. ETHYL ICOSAPENTATE [Concomitant]
     Indication: PROPHYLAXIS
     Dosage: UNK
     Route: 065
     Dates: start: 20100205, end: 20100430
  46. URSODEOXYCHOLIC ACID [Concomitant]
     Indication: PROPHYLAXIS
     Dosage: UNK
     Route: 065
     Dates: start: 20100205, end: 20100430
  47. SULFAMETHOPRIM [Concomitant]
     Indication: INFECTION PROPHYLAXIS
     Dosage: UNK
     Route: 065
     Dates: start: 20100205, end: 20110121
  48. PREDNISOLONE [Concomitant]
     Indication: PROPHYLAXIS AGAINST GRAFT VERSUS HOST DISEASE
     Dosage: UNK
     Route: 065
     Dates: start: 20100225, end: 20100723
  49. PREDNISOLONE [Concomitant]
     Dosage: UNK
     Route: 065
     Dates: start: 20100711
  50. PREDNISOLONE [Concomitant]
     Dosage: UNK
     Route: 065
     Dates: start: 20100907, end: 20101111
  51. PREDNISOLONE [Concomitant]
     Dosage: UNK
     Route: 065
  52. ITRACONAZOL A [Concomitant]
     Indication: PROPHYLAXIS AGAINST GRAFT VERSUS HOST DISEASE
     Dosage: UNK
     Route: 065
     Dates: start: 20100401, end: 20110114
  53. ITRACONAZOL A [Concomitant]
     Indication: INFECTION PROPHYLAXIS
  54. PLATELETS, CONCENTRATED [Concomitant]
     Indication: EWING^S SARCOMA RECURRENT
     Dosage: UNK
     Route: 065
     Dates: start: 20100214, end: 20100215
  55. PLATELETS, CONCENTRATED [Concomitant]
     Dosage: UNK
     Route: 065
     Dates: start: 20100217, end: 20100219
  56. PLATELETS, CONCENTRATED [Concomitant]
     Dosage: UNK
     Route: 065
     Dates: start: 20100221, end: 20100224
  57. PLATELETS, CONCENTRATED [Concomitant]
     Dosage: UNK
     Route: 065
     Dates: start: 20100227, end: 20100227
  58. PLATELETS, CONCENTRATED [Concomitant]
     Dosage: UNK
     Route: 065
     Dates: start: 20100308, end: 20100308
  59. PLATELETS, CONCENTRATED [Concomitant]
     Dosage: UNK
     Route: 065
     Dates: start: 20100726, end: 20100727
  60. PLATELETS, CONCENTRATED [Concomitant]
     Dosage: UNK
     Route: 065
     Dates: start: 20100805, end: 20100806

REACTIONS (31)
  - Chest wall mass [Unknown]
  - Urinary retention [Unknown]
  - Melaena [Unknown]
  - Renal impairment [Fatal]
  - Pancreatitis [Fatal]
  - Inappropriate antidiuretic hormone secretion [Recovered/Resolved]
  - Pain [Unknown]
  - Bone marrow failure [Unknown]
  - Peritonitis [Fatal]
  - Infection [Unknown]
  - Lobar pneumonia [Unknown]
  - Pseudomonas infection [Unknown]
  - Candidiasis [Unknown]
  - Enterococcal infection [Unknown]
  - Encephalitis herpes [Recovered/Resolved]
  - Hepatic function abnormal [Recovered/Resolved]
  - Diarrhoea [Recovered/Resolved]
  - Radiation pneumonitis [Recovered/Resolved]
  - Ewing^s sarcoma [Fatal]
  - Acute graft versus host disease in intestine [Fatal]
  - Acute graft versus host disease in skin [Fatal]
  - Insomnia [Not Recovered/Not Resolved]
  - Febrile neutropenia [Recovered/Resolved]
  - Graft versus host disease in intestine [Recovered/Resolved]
  - Pneumonia [Recovered/Resolved]
  - Memory impairment [Fatal]
  - Depression [Recovered/Resolved]
  - Pancreatitis [Recovered/Resolved]
  - Decreased appetite [Recovered/Resolved with Sequelae]
  - Nausea [Recovered/Resolved with Sequelae]
  - Graft versus host disease in skin [Recovered/Resolved]
